FAERS Safety Report 7558835-2 (Version None)
Quarter: 2011Q2

REPORT INFORMATION
  Report Type: 
  Country: None (occurrence: None)
  Receive Date: 20110621
  Receipt Date: 20110607
  Transmission Date: 20111010
  Serious: Yes (Hospitalization, Other)
  Sender: FDA-Public Use
  Company Number: US-ROCHE-783392

PATIENT

DRUGS (3)
  1. PACLITAXEL [Suspect]
     Indication: BREAST CANCER
     Dosage: OVER 01 HR ON DAY 1,8 AND 15, LAST DOSE ADMINISTERED ON 07 FEBRUARY 2011.
     Route: 042
     Dates: start: 20110103, end: 20110221
  2. MORPHINE [Suspect]
     Indication: PAIN
     Dosage: AS NEEDED.
     Route: 065
  3. BEVACIZUMAB [Suspect]
     Indication: BREAST CANCER
     Dosage: OVER 30-90 MIN ON DAY 1 AND 15. LAST DOSE ADMINISTERED ON 07 FEBRUARY 2011.
     Route: 042
     Dates: start: 20110103, end: 20110221

REACTIONS (9)
  - DIZZINESS [None]
  - URINARY TRACT INFECTION [None]
  - PAIN [None]
  - BONE PAIN [None]
  - CONSTIPATION [None]
  - ANAEMIA [None]
  - EPISTAXIS [None]
  - VOMITING [None]
  - DIARRHOEA [None]
